FAERS Safety Report 5933914-1 (Version None)
Quarter: 2008Q4

REPORT INFORMATION
  Report Type: 
  Country: None (occurrence: None)
  Receive Date: 20081029
  Receipt Date: 20081017
  Transmission Date: 20090506
  Serious: Yes (Hospitalization, Other)
  Sender: FDA-Public Use
  Company Number: CN-ROCHE-592211

PATIENT
  Age: 37 Year
  Sex: Female

DRUGS (1)
  1. PEG-INTERFERON ALFA 2A (RO 25-8310) [Suspect]
     Indication: HEPATITIS B
     Route: 058
     Dates: start: 20080804

REACTIONS (3)
  - ALANINE AMINOTRANSFERASE INCREASED [None]
  - MENSTRUATION DELAYED [None]
  - WHITE BLOOD CELL COUNT DECREASED [None]
